FAERS Safety Report 8848071 (Version 4)
Quarter: 2013Q4

REPORT INFORMATION
  Report Type: Report from Study
  Country: JP (occurrence: JP)
  Receive Date: 20121018
  Receipt Date: 20131118
  Transmission Date: 20140711
  Serious: Yes (Other)
  Sender: FDA-Public Use
  Company Number: JP-VERTEX PHARMACEUTICAL INC.-2012-023059

PATIENT
  Age: 65 Year
  Sex: Male

DRUGS (24)
  1. VX-950 (TELAPREVIR) [Suspect]
     Indication: CHRONIC HEPATITIS C
     Dosage: 2250 MG, QD
     Route: 048
     Dates: start: 20120705, end: 20120708
  2. VX-950 (TELAPREVIR) [Suspect]
     Dosage: 1500 MG, QD
     Route: 048
     Dates: start: 20120709, end: 20120828
  3. VX-950 (TELAPREVIR) [Suspect]
     Dosage: 1000 MG, QD
     Route: 048
     Dates: start: 20120829, end: 20120904
  4. VX-950 (TELAPREVIR) [Suspect]
     Dosage: 1250 MG, QD
     Route: 048
     Dates: start: 20120905, end: 20120918
  5. VX-950 (TELAPREVIR) [Suspect]
     Dosage: 1500 MG, QD
     Route: 048
     Dates: start: 20120919, end: 20120926
  6. REBETOL [Suspect]
     Indication: CHRONIC HEPATITIS C
     Dosage: 800 MG, QD
     Route: 048
     Dates: start: 20120705, end: 20120718
  7. REBETOL [Suspect]
     Dosage: 600 MG, QD
     Route: 048
     Dates: start: 20120719, end: 20120731
  8. REBETOL [Suspect]
     Dosage: 400 MG, QD
     Route: 048
     Dates: start: 20120801, end: 20120807
  9. REBETOL [Suspect]
     Dosage: 200 - 400 MG/DAY ( 200 MG/DAY ON ODDS DAYS, 400 MG/DAY ON EVEN DAYS)UNK, QD
     Dates: start: 20120808, end: 20120821
  10. REBETOL [Suspect]
     Dosage: 200 MG, QD
     Route: 048
     Dates: start: 20120822, end: 20121023
  11. REBETOL [Suspect]
     Dosage: 200 MG/DAY ON ODD DAYS AND 400 MG/DAY ON EVEN DAYS
     Route: 048
     Dates: start: 20121024, end: 20121030
  12. REBETOL [Suspect]
     Dosage: 400 MG, QD
     Route: 048
     Dates: start: 20121031, end: 20121106
  13. REBETOL [Suspect]
     Dosage: 400 MG/DAY ON EVEN DAYS AND 600 MG/DAY ON ODD DAYS
     Dates: start: 20121107, end: 20121127
  14. REBETOL [Suspect]
     Dosage: 600 MG, QD
     Route: 048
     Dates: start: 20121128, end: 20121204
  15. REBETOL [Suspect]
     Dosage: 600 MG/DAY ON ODD DAYS AND 800 MG/DAY ON EVEN DAYS
     Dates: start: 20121205, end: 20121218
  16. PEGINTRON [Suspect]
     Indication: CHRONIC HEPATITIS C
     Dosage: 1.0 ?G/KG,QW
     Route: 058
     Dates: start: 20120705, end: 20121023
  17. PEGINTRON [Suspect]
     Dosage: 1.1 ?G/KG,QW
     Route: 058
     Dates: start: 20121024, end: 20121113
  18. PEGINTRON [Suspect]
     Dosage: 0.9?G/KG, QW
     Route: 058
     Dates: start: 20121114, end: 20121120
  19. PEGINTRON [Suspect]
     Dosage: 1.0 ?G/KG,QW
     Route: 058
     Dates: start: 20121121, end: 20121127
  20. PEGINTRON [Suspect]
     Dosage: 1.1 ?G/KG, QW
     Route: 058
     Dates: start: 20121128, end: 20121212
  21. NEO-MINOPHAGEN C [Concomitant]
     Dosage: 40 ML/DAY, THREE TIMES A WEEK
     Route: 042
     Dates: end: 20120801
  22. UNISIA [Concomitant]
     Dosage: 1 DF, QD
     Route: 048
  23. ALLELOCK [Concomitant]
     Dosage: 10 MG, QD
     Route: 048
  24. URSO [Concomitant]
     Dosage: 600 MG, QD
     Route: 048

REACTIONS (2)
  - Retinopathy [Recovered/Resolved]
  - Neutrophil count decreased [Recovered/Resolved]
